FAERS Safety Report 10419881 (Version 1)
Quarter: 2014Q2

REPORT INFORMATION
  Report Type: Spontaneous
  Country: US (occurrence: None)
  Receive Date: 20140627
  Receipt Date: 20140627
  Transmission Date: 20141212
  Serious: Yes (Other)
  Sender: FDA-Public Use
  Company Number: CABO-14004180

PATIENT
  Age: 82 Year
  Sex: Male

DRUGS (8)
  1. COMETRIQ (CABOZANTINIB) CAPSULE [Suspect]
     Indication: BLADDER CANCER
     Route: 048
     Dates: start: 20140318, end: 20140408
  2. ASPIRIN (ACETYLSALICYLIC ACID) [Concomitant]
  3. FOLIC ACID [Concomitant]
  4. METOPROLOL [Concomitant]
  5. ATORVASTATIN [Concomitant]
  6. B12 (CYANOCOBALAMIN) [Concomitant]
  7. D3 (COLECALCIFEROL) [Concomitant]
  8. COQ10 (UBIDECARENONE) [Concomitant]

REACTIONS (6)
  - Haematochezia [None]
  - Chest pain [None]
  - Fatigue [None]
  - Nausea [None]
  - Hypertension [None]
  - Off label use [None]
